FAERS Safety Report 5479999-0 (Version None)
Quarter: 2007Q4

REPORT INFORMATION
  Report Type: 
  Country: None (occurrence: None)
  Receive Date: 20071008
  Receipt Date: 20070926
  Transmission Date: 20080405
  Serious: Yes (Life-Threatening, Other)
  Sender: FDA-Public Use
  Company Number: AT-PFIZER INC-2007018424

PATIENT
  Sex: Female
  Weight: 66 kg

DRUGS (4)
  1. SUTENT [Suspect]
     Indication: RENAL CELL CARCINOMA STAGE UNSPECIFIED
     Route: 048
     Dates: start: 20070216, end: 20070305
  2. SOTALOL HCL [Concomitant]
  3. ATACAND [Concomitant]
  4. PANTOPRAZOLE SODIUM [Concomitant]

REACTIONS (7)
  - ACUTE PSYCHOSIS [None]
  - HAEMOTHORAX [None]
  - IMPAIRED HEALING [None]
  - MUCOSAL DISCOLOURATION [None]
  - RENAL FAILURE ACUTE [None]
  - WOUND INFECTION [None]
  - YELLOW SKIN [None]
